FAERS Safety Report 10361576 (Version 1)
Quarter: 2014Q3

REPORT INFORMATION
  Report Type: Spontaneous
  Country: US (occurrence: US)
  Receive Date: 20140805
  Receipt Date: 20140805
  Transmission Date: 20150326
  Serious: No
  Sender: FDA-Public Use
  Company Number: US-BIOGENIDEC-2014BI073659

PATIENT
  Age: 51 Year
  Sex: Female

DRUGS (9)
  1. TECFIDERA [Suspect]
     Active Substance: DIMETHYL FUMARATE
     Indication: MULTIPLE SCLEROSIS
     Route: 048
     Dates: end: 20140702
  2. VENTOLIN [Concomitant]
     Active Substance: ALBUTEROL SULFATE
  3. IRBESARTAN. [Concomitant]
     Active Substance: IRBESARTAN
  4. AVAPRO [Concomitant]
     Active Substance: IRBESARTAN
  5. VERAMYST [Concomitant]
     Active Substance: FLUTICASONE FUROATE
  6. BUPROPION [Concomitant]
     Active Substance: BUPROPION
  7. VITAMIN D3 [Concomitant]
     Active Substance: CHOLECALCIFEROL
  8. ADVAIR HFA [Concomitant]
     Active Substance: FLUTICASONE PROPIONATE\SALMETEROL XINAFOATE
  9. MODAFINIL. [Concomitant]
     Active Substance: MODAFINIL

REACTIONS (3)
  - Swelling [Unknown]
  - Flushing [Unknown]
  - Urticaria [Unknown]

NARRATIVE: CASE EVENT DATE: 20140702
